FAERS Safety Report 5068175-1 (Version None)
Quarter: 2006Q3

REPORT INFORMATION
  Report Type: 
  Country: None (occurrence: None)
  Receive Date: 20060731
  Receipt Date: 20060718
  Transmission Date: 20061208
  Serious: Yes (Other)
  Sender: FDA-Public Use
  Company Number: CHPA2006US07009

PATIENT
  Age: 13 Year
  Sex: Female
  Weight: 36.3 kg

DRUGS (1)
  1. TRANSDERM SCOP [Suspect]
     Indication: PROPHYLAXIS AGAINST MOTION SICKNESS
     Dosage: 1.5 MG, Q72H, TRANSDERMAL
     Route: 062
     Dates: start: 20050301

REACTIONS (4)
  - DISORIENTATION [None]
  - MYDRIASIS [None]
  - SLEEP WALKING [None]
  - VISION BLURRED [None]
